FAERS Safety Report 7705361-3 (Version None)
Quarter: 2011Q3

REPORT INFORMATION
  Report Type: 
  Country: None (occurrence: None)
  Receive Date: 20110823
  Receipt Date: 20110823
  Transmission Date: 20111222
  Serious: Yes (Life-Threatening, Hospitalization)
  Sender: FDA-Public Use
  Company Number: None

PATIENT
  Sex: Female
  Weight: 80.4 kg

DRUGS (1)
  1. RITUXIMAB 4MG/ML GENENTECH [Suspect]
     Indication: NEUROMYELITIS OPTICA
     Dosage: 1000 MG ONCE IV
     Route: 042
     Dates: start: 20110721

REACTIONS (3)
  - PYREXIA [None]
  - HEPATIC NECROSIS [None]
  - HYPOTENSION [None]
